FAERS Safety Report 8100552-4 (Version None)
Quarter: 2012Q1

REPORT INFORMATION
  Report Type: 
  Country: None (occurrence: None)
  Receive Date: 20120129
  Receipt Date: 20111110
  Transmission Date: 20120608
  Serious: No
  Sender: FDA-Public Use
  Company Number: US-ABBOTT-11P-163-0873333-00

PATIENT
  Age: 73 Year
  Sex: Female

DRUGS (12)
  1. TEGRETOL [Concomitant]
     Indication: CONVULSION PROPHYLAXIS
  2. PENTOXIFYLLINE [Concomitant]
     Indication: DEPRESSION
  3. LITHIUM CARBONATE [Concomitant]
     Indication: PRODUCT USED FOR UNKNOWN INDICATION
  4. PREVACID [Concomitant]
     Indication: GASTROOESOPHAGEAL REFLUX DISEASE
  5. LIOTHYRONINE SODIUM [Concomitant]
     Indication: THYROID DISORDER
  6. CLOMIPRAMINE HCL [Concomitant]
     Indication: DEPRESSION
  7. VITAMIN D [Concomitant]
     Indication: PRODUCT USED FOR UNKNOWN INDICATION
  8. HUMIRA [Suspect]
     Indication: ANKYLOSING SPONDYLITIS
  9. NAPROSYN [Concomitant]
     Indication: PAIN
  10. BUSPAR [Concomitant]
     Indication: DEPRESSION
  11. TRAMADOL HCL [Concomitant]
     Indication: PAIN
  12. IRON [Concomitant]
     Indication: MINERAL SUPPLEMENTATION

REACTIONS (4)
  - DIARRHOEA [None]
  - GASTRIC DISORDER [None]
  - NAUSEA [None]
  - GASTROENTERITIS VIRAL [None]
